FAERS Safety Report 20395162 (Version 1)
Quarter: 2022Q1

REPORT INFORMATION
  Report Type: Spontaneous
  Country: US (occurrence: US)
  Receive Date: 20220130
  Receipt Date: 20220130
  Transmission Date: 20220423
  Serious: Yes (Other)
  Sender: FDA-Public Use
  Company Number: US-NOVARTISPH-NVSC2022US020030

PATIENT
  Age: 70 Year

DRUGS (2)
  1. RANITIDINE [Suspect]
     Active Substance: RANITIDINE
     Indication: Irritable bowel syndrome
     Dosage: 150 MG,,DAILY,TWICE A DAY
     Route: 048
     Dates: start: 201201, end: 202001
  2. RANITIDINE [Suspect]
     Active Substance: RANITIDINE
     Indication: Irritable bowel syndrome
     Dosage: 150 MG,,DAILY,TWICE A DAY
     Route: 048
     Dates: start: 201201, end: 202001

REACTIONS (1)
  - Prostate cancer [Unknown]

NARRATIVE: CASE EVENT DATE: 20150101
